FAERS Safety Report 7465691-X (Version None)
Quarter: 2011Q2

REPORT INFORMATION
  Report Type: 
  Country: None (occurrence: None)
  Receive Date: 20110509
  Receipt Date: 20110429
  Transmission Date: 20111010
  Serious: Yes (Death)
  Sender: FDA-Public Use
  Company Number: B0705844A

PATIENT
  Sex: Male
  Weight: 14.5 kg

DRUGS (5)
  1. ATRIANCE [Suspect]
     Dosage: 384MG PER DAY
     Route: 042
     Dates: start: 20110211, end: 20110215
  2. ETOPOSIDE [Concomitant]
     Dosage: 88.5MG PER DAY
     Route: 042
     Dates: start: 20110211, end: 20110215
  3. ARACYTIN [Concomitant]
     Route: 037
     Dates: start: 20110114
  4. METHOTREXATE [Concomitant]
     Route: 037
     Dates: start: 20110114
  5. CYCLOPHOSPHAMIDE [Concomitant]
     Dosage: 236MG PER DAY
     Route: 042
     Dates: start: 20110211, end: 20110215

REACTIONS (7)
  - NAUSEA [None]
  - LEUKAEMIA RECURRENT [None]
  - CEREBELLAR SYNDROME [None]
  - VOMITING [None]
  - ABDOMINAL PAIN [None]
  - BALANCE DISORDER [None]
  - GAIT DISTURBANCE [None]
